FAERS Safety Report 7981627-7 (Version None)
Quarter: 2011Q4

REPORT INFORMATION
  Report Type: 
  Country: None (occurrence: None)
  Receive Date: 20111215
  Receipt Date: 20111207
  Transmission Date: 20120403
  Serious: Yes (Other)
  Sender: FDA-Public Use
  Company Number: AU-BRISTOL-MYERS SQUIBB COMPANY-16276925

PATIENT
  Age: 60 Year
  Sex: Female
  Weight: 67 kg

DRUGS (11)
  1. IRON [Concomitant]
  2. PROVERA [Concomitant]
  3. PERINDOPRIL ERBUMINE [Concomitant]
  4. ACETAMINOPHEN [Concomitant]
  5. CELEBREX [Concomitant]
  6. CLINDAMYCIN [Concomitant]
  7. PRILOSEC [Concomitant]
  8. PREDNISONE [Concomitant]
  9. ORENCIA [Suspect]
     Indication: RHEUMATOID ARTHRITIS
     Route: 042
     Dates: start: 20101015
  10. METHOTREXATE [Concomitant]
  11. FOLIC ACID [Concomitant]

REACTIONS (3)
  - BRONCHIECTASIS [None]
  - ORAL HERPES [None]
  - INFECTION [None]
